FAERS Safety Report 8391932-0 (Version None)
Quarter: 2012Q2

REPORT INFORMATION
  Report Type: 
  Country: None (occurrence: None)
  Receive Date: 20120529
  Receipt Date: 20120516
  Transmission Date: 20120825
  Serious: Yes (Other)
  Sender: FDA-Public Use
  Company Number: IE-GLAXOSMITHKLINE-B0802798A

PATIENT
  Sex: Female

DRUGS (6)
  1. FLUTICASONE FUROATE [Suspect]
     Indication: NASAL CONGESTION
     Route: 045
     Dates: start: 20110408, end: 20120421
  2. OXYBUTYNIN [Concomitant]
     Indication: HYPERTONIC BLADDER
     Dates: start: 20100322
  3. STALEVO 100 [Concomitant]
     Indication: PARKINSON'S DISEASE
     Dates: start: 20060501
  4. LANSOPRAZOLE [Concomitant]
     Indication: GASTROOESOPHAGEAL REFLUX DISEASE
     Route: 048
     Dates: start: 20100608
  5. REQUIP [Concomitant]
     Indication: PARKINSON'S DISEASE
     Dosage: 6MG PER DAY
     Route: 048
     Dates: start: 20080601
  6. SINEMET [Concomitant]
     Indication: PARKINSON'S DISEASE
     Dates: start: 20090401

REACTIONS (4)
  - DIZZINESS [None]
  - DYSPNOEA [None]
  - PRESYNCOPE [None]
  - ASTHENIA [None]
